FAERS Safety Report 24108418 (Version 2)
Quarter: 2024Q3

REPORT INFORMATION
  Report Type: Spontaneous
  Country: TH (occurrence: TH)
  Receive Date: 20240718
  Receipt Date: 20240925
  Transmission Date: 20241017
  Serious: Yes (Other)
  Sender: ALK-ABELLO
  Company Number: TH-ALK-ABELLO A/S-2024AA002831

PATIENT

DRUGS (1)
  1. ACARIZAX [Suspect]
     Active Substance: DERMATOPHAGOIDES FARINAE\DERMATOPHAGOIDES PTERONYSSINUS
     Indication: Mite allergy
     Dosage: 12 SQ-HDM, QD
     Route: 060
     Dates: start: 202212

REACTIONS (9)
  - Eosinophilic oesophagitis [Recovered/Resolved]
  - Eosinophilic gastritis [Recovered/Resolved]
  - Oesophageal food impaction [Recovered/Resolved]
  - Abdominal pain [Recovered/Resolved]
  - Vomiting [Recovered/Resolved]
  - Dyspepsia [Recovered/Resolved]
  - Dysphagia [Recovered/Resolved]
  - Eosinophilia [Recovered/Resolved]
  - Gastric mucosa erythema [Recovered/Resolved]
